FAERS Safety Report 18518552 (Version 1)
Quarter: 2020Q4

REPORT INFORMATION
  Report Type: Spontaneous
  Country: AU (occurrence: AU)
  Receive Date: 20201118
  Receipt Date: 20201118
  Transmission Date: 20210114
  Serious: Yes (Other)
  Sender: FDA-Public Use
  Company Number: AU-ALLERGAN-2044196US

PATIENT
  Sex: Male

DRUGS (6)
  1. SAFLUTAN [Concomitant]
     Active Substance: TAFLUPROST
     Dosage: UNK, QPM
  2. LUMIGAN [Suspect]
     Active Substance: BIMATOPROST
     Indication: OPEN ANGLE GLAUCOMA
     Dosage: UNK UNK, BID
     Route: 047
  3. SPAN-K [Concomitant]
     Active Substance: POTASSIUM CHLORIDE
     Dosage: UNK, TID
  4. DIAMOX SEQUELS [Concomitant]
     Active Substance: ACETAZOLAMIDE
     Dosage: 2 DF, TID
  5. TRUSOPT [Suspect]
     Active Substance: DORZOLAMIDE HYDROCHLORIDE
     Indication: OPEN ANGLE GLAUCOMA
  6. XALATAN [Concomitant]
     Active Substance: LATANOPROST
     Dosage: UNK UNK, BID

REACTIONS (5)
  - Inappropriate schedule of product administration [Unknown]
  - Optic disc disorder [Unknown]
  - Myopic chorioretinal degeneration [Unknown]
  - Intraocular pressure increased [Unknown]
  - Optic nerve cupping [Unknown]
